FAERS Safety Report 17439206 (Version 1)
Quarter: 2020Q1

REPORT INFORMATION
  Report Type: Spontaneous
  Country: UA (occurrence: UA)
  Receive Date: 20200220
  Receipt Date: 20200220
  Transmission Date: 20200409
  Serious: Yes (Other)
  Sender: FDA-Public Use
  Company Number: UA-TEVA-2020-UA-1186160

PATIENT
  Age: 5 Year
  Sex: Male

DRUGS (1)
  1. SUMAMED [Suspect]
     Active Substance: AZITHROMYCIN ANHYDROUS
     Route: 065

REACTIONS (3)
  - Product prescribing error [Unknown]
  - Drug ineffective [Unknown]
  - Pneumonia [Unknown]
